FAERS Safety Report 18876116 (Version 1)
Quarter: 2021Q1

REPORT INFORMATION
  Report Type: Spontaneous
  Country: US (occurrence: US)
  Receive Date: 20210210
  Receipt Date: 20210210
  Transmission Date: 20210420
  Serious: Yes (Disabling, Other)
  Sender: FDA-Public Use
  Company Number: US-ELI_LILLY_AND_COMPANY-US202102002875

PATIENT
  Sex: Female

DRUGS (7)
  1. LANTUS [Concomitant]
     Active Substance: INSULIN GLARGINE
     Indication: DIABETES MELLITUS
     Dosage: 28.5 U, DAILY
  2. HUMALOG [Suspect]
     Active Substance: INSULIN LISPRO
     Indication: PRODUCT USED FOR UNKNOWN INDICATION
     Dosage: UNK UNK, UNKNOWN
     Route: 058
     Dates: start: 1986
  3. HUMULIN R [Suspect]
     Active Substance: INSULIN HUMAN
     Indication: PRODUCT USED FOR UNKNOWN INDICATION
     Dosage: UNK UNK, UNKNOWN
     Route: 058
     Dates: start: 1986
  4. TOUJEO [Suspect]
     Active Substance: INSULIN GLARGINE
     Indication: DIABETES MELLITUS
     Dosage: UNK UNK, UNKNOWN
     Route: 065
  5. HUMALOG [Suspect]
     Active Substance: INSULIN LISPRO
     Dosage: 75 U, DAILY (50?75 UNITS PER DAY)
     Route: 058
  6. NOVOLOG [Concomitant]
     Active Substance: INSULIN ASPART
     Indication: DIABETES MELLITUS
     Dosage: UNK UNK, UNKNOWN
     Route: 065
  7. HUMULIN N [Suspect]
     Active Substance: INSULIN HUMAN
     Indication: PRODUCT USED FOR UNKNOWN INDICATION
     Dosage: UNK UNK, UNKNOWN
     Route: 058
     Dates: start: 1986

REACTIONS (25)
  - Head injury [Unknown]
  - Pain [Unknown]
  - Blood glucose decreased [Unknown]
  - Accident at work [Unknown]
  - Gait disturbance [Unknown]
  - Accident at work [Unknown]
  - Headache [Unknown]
  - Limb injury [Unknown]
  - Muscle spasms [Unknown]
  - Nerve compression [Unknown]
  - Back injury [Unknown]
  - Muscle spasms [Unknown]
  - Tendonitis [Unknown]
  - Neck injury [Unknown]
  - Eye disorder [Unknown]
  - Diabetes mellitus inadequate control [Unknown]
  - Fall [Unknown]
  - Carpal tunnel syndrome [Unknown]
  - Rheumatoid arthritis [Unknown]
  - Illness [Unknown]
  - Limb injury [Unknown]
  - COVID-19 [Recovered/Resolved]
  - Loss of consciousness [Unknown]
  - Joint injury [Unknown]
  - Tremor [Unknown]

NARRATIVE: CASE EVENT DATE: 20200214
